FAERS Safety Report 6341793-6 (Version None)
Quarter: 2009Q3

REPORT INFORMATION
  Report Type: 
  Country: None (occurrence: None)
  Receive Date: 20090904
  Receipt Date: 20090828
  Transmission Date: 20100115
  Serious: Yes (Hospitalization)
  Sender: FDA-Public Use
  Company Number: US-ABBOTT-09P-163-0594147-00

PATIENT
  Sex: Female

DRUGS (4)
  1. HUMIRA [Suspect]
     Indication: RHEUMATOID ARTHRITIS
  2. FOSAMAX [Suspect]
     Indication: DRUG USE FOR UNKNOWN INDICATION
  3. ULTRAM [Suspect]
     Indication: DRUG USE FOR UNKNOWN INDICATION
  4. UNKNOWN LIST [Concomitant]
     Indication: DRUG USE FOR UNKNOWN INDICATION

REACTIONS (7)
  - BLOOD GLUCOSE INCREASED [None]
  - DECREASED APPETITE [None]
  - DEHYDRATION [None]
  - HALLUCINATION [None]
  - HEPATIC CIRRHOSIS [None]
  - NAUSEA [None]
  - VOMITING [None]
